FAERS Safety Report 5093991-X (Version None)
Quarter: 2006Q3

REPORT INFORMATION
  Report Type: 
  Country: None (occurrence: None)
  Receive Date: 20060728
  Receipt Date: 20060525
  Transmission Date: 20061208
  Serious: No
  Sender: FDA-Public Use
  Company Number: 253616

PATIENT
  Age: 63 Year
  Sex: Male
  Weight: 131.1 kg

DRUGS (1)
  1. LEVEMIR [Suspect]
     Indication: DIABETES MELLITUS INSULIN-DEPENDENT
     Dosage: 40 IU, QD, SUBCUTANEOUS
     Route: 058
     Dates: start: 20060118, end: 20060420

REACTIONS (1)
  - BLOOD GLUCOSE FLUCTUATION [None]
